FAERS Safety Report 18331614 (Version 1)
Quarter: 2020Q3

REPORT INFORMATION
  Report Type: Spontaneous
  Country: CA (occurrence: CA)
  Receive Date: 20200930
  Receipt Date: 20200930
  Transmission Date: 20201103
  Serious: Yes (Other)
  Sender: FDA-Public Use
  Company Number: CA-JNJFOC-20200942705

PATIENT
  Age: 19 Year
  Sex: Female
  Weight: 87 kg

DRUGS (3)
  1. BUDESONIDE. [Concomitant]
     Active Substance: BUDESONIDE
     Route: 065
  2. MESALAZINE [Concomitant]
     Active Substance: MESALAMINE
     Route: 065
  3. INFLIXIMAB, RECOMBINANT [Suspect]
     Active Substance: INFLIXIMAB
     Indication: COLITIS ULCERATIVE
     Route: 042

REACTIONS (9)
  - Malaise [Unknown]
  - Contusion [Unknown]
  - Chills [Unknown]
  - Pain [Unknown]
  - Weight decreased [Unknown]
  - Oxygen saturation abnormal [Unknown]
  - Condition aggravated [Unknown]
  - Pyrexia [Unknown]
  - Infection [Unknown]
